FAERS Safety Report 8110494-6 (Version None)
Quarter: 2012Q1

REPORT INFORMATION
  Report Type: 
  Country: None (occurrence: None)
  Receive Date: 20120202
  Receipt Date: 20120124
  Transmission Date: 20120608
  Serious: Yes (Other)
  Sender: FDA-Public Use
  Company Number: DE-BAXTER-2012BH002783

PATIENT
  Age: 52 Year
  Sex: Male
  Weight: 77 kg

DRUGS (9)
  1. NUTRINEAL [Suspect]
     Route: 033
     Dates: end: 20101118
  2. EPOGEN [Concomitant]
     Indication: PRODUCT USED FOR UNKNOWN INDICATION
     Route: 065
  3. BETA BLOCKING AGENTS [Concomitant]
     Indication: PRODUCT USED FOR UNKNOWN INDICATION
     Route: 048
  4. CALCIUM CHANNEL BLOCKERS [Concomitant]
     Indication: PRODUCT USED FOR UNKNOWN INDICATION
     Route: 048
  5. EXTRANEAL [Suspect]
     Indication: PERITONEAL DIALYSIS
     Route: 033
     Dates: start: 20070719, end: 20101118
  6. NUTRINEAL [Suspect]
     Indication: PERITONEAL DIALYSIS
     Route: 033
  7. ACE INHIBITOR NOS [Concomitant]
     Indication: PRODUCT USED FOR UNKNOWN INDICATION
     Route: 048
  8. PHYSIOSOL IN PLASTIC CONTAINER [Suspect]
     Indication: PERITONEAL DIALYSIS
     Route: 033
     Dates: start: 20070719, end: 20101118
  9. IRON [Concomitant]
     Indication: PRODUCT USED FOR UNKNOWN INDICATION
     Route: 042

REACTIONS (1)
  - NONINFECTIOUS PERITONITIS [None]
